FAERS Safety Report 15366414 (Version 1)
Quarter: 2018Q3

REPORT INFORMATION
  Report Type: Spontaneous
  Country: US (occurrence: US)
  Receive Date: 20180910
  Receipt Date: 20180910
  Transmission Date: 20181010
  Serious: Yes (Hospitalization, Other)
  Sender: FDA-Public Use
  Company Number: US-TORRENT-00006840

PATIENT
  Sex: Male
  Weight: 77 kg

DRUGS (1)
  1. VALSARTAN. [Suspect]
     Active Substance: VALSARTAN
     Indication: HYPERTENSION
     Dosage: UNK

REACTIONS (6)
  - Hypoaesthesia [Unknown]
  - Pancreatitis chronic [Unknown]
  - Pain in extremity [Unknown]
  - Blood glucose decreased [Unknown]
  - Hospitalisation [Unknown]
  - Hypoglycaemia [Unknown]
